FAERS Safety Report 9378605 (Version 2)
Quarter: 2013Q3

REPORT INFORMATION
  Report Type: Spontaneous
  Country: IN (occurrence: None)
  Receive Date: 20130626
  Receipt Date: 20130709
  Transmission Date: 20140515
  Serious: Yes (Other)
  Sender: FDA-Public Use
  Company Number: AUR-APL-2013-05251

PATIENT
  Age: 32 None
  Sex: Female

DRUGS (3)
  1. TOPIRAMATE (TOPIRAMATE) [Suspect]
     Indication: PYREXIA
     Dosage: 600 MG/800 MG SINGLE DOSE, ORAL
     Route: 048
  2. TRIMETHOPRIM+SULFAMETHOXAZOLE [Suspect]
     Indication: PRODUCT USED FOR UNKNOWN INDICATION
  3. ACETAZOLAMIDE [Suspect]
     Indication: PRODUCT USED FOR UNKNOWN INDICATION

REACTIONS (4)
  - Angle closure glaucoma [None]
  - Iridocyclitis [None]
  - Cross sensitivity reaction [None]
  - Drug hypersensitivity [None]
